FAERS Safety Report 21931109 (Version 1)
Quarter: 2023Q1

REPORT INFORMATION
  Report Type: Spontaneous
  Country: US (occurrence: None)
  Receive Date: 20230130
  Receipt Date: 20230130
  Transmission Date: 20230418
  Serious: Yes (Other)
  Sender: FDA-Public Use
  Company Number: None

PATIENT
  Age: 64 Year
  Sex: Female
  Weight: 57.6 kg

DRUGS (18)
  1. AXICABTAGENE CILOLEUCEL [Suspect]
     Active Substance: AXICABTAGENE CILOLEUCEL
     Indication: Diffuse large B-cell lymphoma
     Dosage: OTHER FREQUENCY : ONCE;?
     Route: 041
     Dates: start: 20220314, end: 20220314
  2. ALLOPURINOL [Concomitant]
     Active Substance: ALLOPURINOL
     Dates: start: 20220314, end: 20220318
  3. AMOXICILLIN\CLAVULANIC ACID [Concomitant]
     Active Substance: AMOXICILLIN\CLAVULANIC ACID
     Dates: start: 20220322, end: 20220327
  4. ATORVASTATIN [Concomitant]
     Active Substance: ATORVASTATIN
     Dates: start: 20220314, end: 20220326
  5. CHLORHEXIDINE [Concomitant]
     Active Substance: CHLORHEXIDINE
     Dates: start: 20220314, end: 20220326
  6. CIPROFLOXACIN [Concomitant]
     Active Substance: CIPROFLOXACIN
     Dates: start: 20220314, end: 20220322
  7. ENOXAPARIN [Concomitant]
     Active Substance: ENOXAPARIN
     Dates: start: 20220314, end: 20220327
  8. FLUCONAZOLE [Concomitant]
     Active Substance: FLUCONAZOLE
     Dates: start: 20220314, end: 20220327
  9. LORATADINE [Concomitant]
     Active Substance: LORATADINE
     Dates: start: 20220321, end: 20220327
  10. ONDANSETRON [Concomitant]
     Active Substance: ONDANSETRON
     Dates: start: 20220318, end: 20220319
  11. OXYCODONE [Concomitant]
     Active Substance: OXYCODONE
     Dates: start: 20220318, end: 20220318
  12. PANTOPRAZOLE [Concomitant]
     Active Substance: PANTOPRAZOLE
     Dates: start: 20220321, end: 20220327
  13. polyethyline glycol [Concomitant]
     Dates: start: 20220315, end: 20220316
  14. POTASSIUM CHLORIDE [Concomitant]
     Active Substance: POTASSIUM CHLORIDE
     Dates: start: 20220320, end: 20220322
  15. supersaturated calcium phosphate rinse [Concomitant]
     Dates: start: 20220314, end: 20220327
  16. TBO-FILGRASTIM [Concomitant]
     Active Substance: TBO-FILGRASTIM
     Dates: start: 20220323, end: 20220323
  17. TRAMADOL [Concomitant]
     Active Substance: TRAMADOL
     Dates: start: 20220322, end: 20220322
  18. VALACYCLOVIR [Concomitant]
     Active Substance: VALACYCLOVIR HYDROCHLORIDE
     Dates: start: 20220314, end: 20220327

REACTIONS (2)
  - Cytokine release syndrome [None]
  - Infusion related reaction [None]

NARRATIVE: CASE EVENT DATE: 20220301
